FAERS Safety Report 4697825-4 (Version None)
Quarter: 2005Q2

REPORT INFORMATION
  Report Type: 
  Country: None (occurrence: None)
  Receive Date: 20050621
  Receipt Date: 20050621
  Transmission Date: 20051028
  Serious: Yes (Disabling)
  Sender: FDA-Public Use
  Company Number: None

PATIENT
  Age: 57 Year
  Sex: Female
  Weight: 72.5755 kg

DRUGS (6)
  1. AVELOX [Suspect]
     Indication: SINUSITIS
     Dosage: 1 TABLET   1 X DAILY   ORAL
     Route: 048
     Dates: start: 20050527, end: 20050614
  2. CLARITIN [Concomitant]
  3. ESTROGEN [Concomitant]
  4. PROVERA [Concomitant]
  5. NASAREL [Concomitant]
  6. IBUPROFEN [Concomitant]

REACTIONS (3)
  - LYMPHADENOPATHY [None]
  - PAIN IN EXTREMITY [None]
  - RASH [None]
